FAERS Safety Report 14376779 (Version 1)
Quarter: 2018Q1

REPORT INFORMATION
  Report Type: Spontaneous
  Country: US (occurrence: US)
  Receive Date: 20180111
  Receipt Date: 20180111
  Transmission Date: 20180509
  Serious: Yes (Other)
  Sender: FDA-Public Use
  Company Number: US-CELGENEUS-USA-20171001453

PATIENT
  Sex: Male

DRUGS (5)
  1. HYDROXYUREA. [Concomitant]
     Active Substance: HYDROXYUREA
     Indication: PRODUCT USED FOR UNKNOWN INDICATION
     Route: 065
  2. IDHIFA [Suspect]
     Active Substance: ENASIDENIB MESYLATE
     Indication: ACUTE MYELOID LEUKAEMIA
     Dosage: 100MG DAILY
     Route: 048
     Dates: start: 20170920
  3. ALLOPURINOL. [Concomitant]
     Active Substance: ALLOPURINOL
     Indication: PRODUCT USED FOR UNKNOWN INDICATION
     Route: 065
  4. ATORVASTATIN [Concomitant]
     Active Substance: ATORVASTATIN
     Indication: PRODUCT USED FOR UNKNOWN INDICATION
     Route: 065
  5. COLCHICINE. [Concomitant]
     Active Substance: COLCHICINE
     Indication: PRODUCT USED FOR UNKNOWN INDICATION
     Route: 065

REACTIONS (4)
  - Dyspnoea [Not Recovered/Not Resolved]
  - Decreased appetite [Not Recovered/Not Resolved]
  - Platelet count decreased [Not Recovered/Not Resolved]
  - Somnolence [Not Recovered/Not Resolved]
